FAERS Safety Report 5344450-8 (Version None)
Quarter: 2007Q2

REPORT INFORMATION
  Report Type: 
  Country: None (occurrence: None)
  Receive Date: 20070604
  Receipt Date: 20070525
  Transmission Date: 20071010
  Serious: Yes (Death, Hospitalization)
  Sender: FDA-Public Use
  Company Number: US-AMGEN-STX225409

PATIENT
  Sex: Male

DRUGS (2)
  1. ENBREL [Suspect]
     Indication: RHEUMATOID ARTHRITIS
     Route: 058
     Dates: start: 20041110, end: 20070401
  2. METHOTREXATE [Concomitant]
     Route: 048

REACTIONS (3)
  - ASBESTOSIS [None]
  - COLON CANCER [None]
  - WEIGHT DECREASED [None]
